FAERS Safety Report 15488076 (Version 2)
Quarter: 2018Q4

REPORT INFORMATION
  Report Type: Spontaneous
  Country: US (occurrence: US)
  Receive Date: 20181011
  Receipt Date: 20181016
  Transmission Date: 20190205
  Serious: No
  Sender: FDA-Public Use
  Company Number: US-PFIZER INC-2018405718

PATIENT
  Age: 76 Year
  Sex: Female
  Weight: 96.6 kg

DRUGS (1)
  1. IBRANCE [Suspect]
     Active Substance: PALBOCICLIB
     Indication: NEOPLASM MALIGNANT
     Dosage: 125 MG, CYCLIC (ONE CAPSULE BY MOUTH DAILY FOR 21 DAYS)
     Route: 048
     Dates: start: 20181005

REACTIONS (2)
  - Retching [Unknown]
  - Dysphagia [Unknown]

NARRATIVE: CASE EVENT DATE: 20181005
